FAERS Safety Report 25121838 (Version 5)
Quarter: 2025Q4

REPORT INFORMATION
  Report Type: Spontaneous
  Country: US (occurrence: US)
  Receive Date: 20250326
  Receipt Date: 20251029
  Transmission Date: 20260117
  Serious: Yes (Hospitalization, Other)
  Sender: NOVO NORDISK
  Company Number: US-NOVOPROD-1395932

PATIENT
  Age: 46 Year
  Sex: Male
  Weight: 99.05 kg

DRUGS (7)
  1. SEMAGLUTIDE [Suspect]
     Active Substance: SEMAGLUTIDE
     Indication: Glucose tolerance impaired
     Dosage: 0.25 MG DOSE FOR TWO WEEKS
     Dates: start: 20250221, end: 20250228
  2. ICOSAPENT ETHYL [Concomitant]
     Active Substance: ICOSAPENT ETHYL
     Indication: Hyperlipidaemia
     Dosage: 2 TABLETS TWICE DAILY
     Route: 048
     Dates: start: 20250215
  3. LEVOTHYROXINE [Concomitant]
     Active Substance: LEVOTHYROXINE
     Indication: Autoimmune hypothyroidism
     Dosage: 137 MCG, QD
     Route: 048
     Dates: start: 20250402
  4. NEBIVOLOL [Concomitant]
     Active Substance: NEBIVOLOL
     Indication: Essential hypertension
     Dosage: 5 MG, QD
     Route: 048
     Dates: start: 20250319
  5. FERROUS SULFATE [Concomitant]
     Active Substance: FERROUS SULFATE
     Indication: Iron deficiency anaemia
     Dosage: 325 MG, THRICE A WEEK
     Dates: start: 20250215
  6. TESTOSTERONE [Concomitant]
     Active Substance: TESTOSTERONE
     Indication: Hypogonadism male
     Dosage: 0.5 ML EVERY THREE WEEKS
     Route: 030
     Dates: start: 20250228
  7. TESTOSTERONE CYPIONATE [Concomitant]
     Active Substance: TESTOSTERONE CYPIONATE
     Indication: Hypogonadism male
     Dosage: 200 , EVERY THREE WEEKS0.5 ML EVERY THREE WEEKS
     Dates: start: 20250402

REACTIONS (9)
  - Dehydration [Recovered/Resolved]
  - Acute kidney injury [Recovered/Resolved]
  - Gout [Not Recovered/Not Resolved]
  - Type 2 diabetes mellitus [Unknown]
  - Decreased appetite [Recovered/Resolved]
  - Medical procedure [Unknown]
  - Malaise [Not Recovered/Not Resolved]
  - Vomiting [Recovered/Resolved]
  - Nausea [Unknown]

NARRATIVE: CASE EVENT DATE: 20250101
